FAERS Safety Report 12885513 (Version 1)
Quarter: 2016Q4

REPORT INFORMATION
  Report Type: Spontaneous
  Country: SE (occurrence: SE)
  Receive Date: 20161026
  Receipt Date: 20161026
  Transmission Date: 20170207
  Serious: Yes (Other)
  Sender: FDA-Public Use
  Company Number: SE-TEVA-703841ROM

PATIENT
  Age: 71 Year
  Sex: Female

DRUGS (3)
  1. FENTANYL TRANSDERMAL SYSTEM [Suspect]
     Active Substance: FENTANYL
     Indication: RHEUMATIC DISORDER
     Route: 003
     Dates: start: 20161014
  2. FENTANYL TRANSDERMAL SYSTEM [Suspect]
     Active Substance: FENTANYL
     Route: 003
  3. OXYCODONE [Suspect]
     Active Substance: OXYCODONE
     Indication: RHEUMATIC DISORDER
     Dosage: 2.5 MILLIGRAM DAILY; 1-2 TABLETS 4 TIMES DAILY
     Dates: start: 2015

REACTIONS (5)
  - Wrong technique in product usage process [Not Recovered/Not Resolved]
  - Drug ineffective [Not Recovered/Not Resolved]
  - Product adhesion issue [Not Recovered/Not Resolved]
  - Abasia [Not Recovered/Not Resolved]
  - Pain [Not Recovered/Not Resolved]
